FAERS Safety Report 12784548 (Version 1)
Quarter: 2016Q3

REPORT INFORMATION
  Report Type: Spontaneous
  Country: JP (occurrence: JP)
  Receive Date: 20160927
  Receipt Date: 20160927
  Transmission Date: 20161109
  Serious: Yes (Death, Other)
  Sender: FDA-Public Use
  Company Number: PHHY2016JP118343

PATIENT
  Age: 71 Year
  Sex: Male

DRUGS (3)
  1. PAZOPANIB [Suspect]
     Active Substance: PAZOPANIB
     Indication: VASCULAR NEOPLASM
     Dosage: 800 MG, QD
     Route: 065
  2. DOXORUBICIN [Suspect]
     Active Substance: DOXORUBICIN
     Indication: VASCULAR NEOPLASM
     Dosage: 25 MG/M2, (ON DAYS 1-3) EVERY 3 WEEKS
     Route: 065
  3. IFOSFAMIDE. [Suspect]
     Active Substance: IFOSFAMIDE
     Indication: VASCULAR NEOPLASM
     Dosage: 2.5 G/M2, (ON DAYS 1-4) EVERY 3 WEEKS
     Route: 065

REACTIONS (9)
  - Fatigue [Unknown]
  - Blister [Unknown]
  - Gait disturbance [Unknown]
  - Disease progression [Unknown]
  - Palmar-plantar erythrodysaesthesia syndrome [Recovering/Resolving]
  - Neutropenia [Unknown]
  - Vascular neoplasm [Fatal]
  - Therapeutic response decreased [Unknown]
  - Neoplasm progression [Fatal]
